FAERS Safety Report 8121961-3 (Version None)
Quarter: 2012Q1

REPORT INFORMATION
  Report Type: 
  Country: None (occurrence: None)
  Receive Date: 20120207
  Receipt Date: 20120207
  Transmission Date: 20120608
  Serious: No
  Sender: FDA-Public Use
  Company Number: None

PATIENT
  Age: 83 Year
  Sex: Male
  Weight: 52.1 kg

DRUGS (1)
  1. DABIGATRAN [Suspect]
     Indication: ATRIAL FIBRILLATION
     Dosage: MG BID PO
     Route: 048
     Dates: start: 20111214, end: 20120202

REACTIONS (3)
  - HEPATIC ENZYME INCREASED [None]
  - DISSEMINATED INTRAVASCULAR COAGULATION [None]
  - INTERNATIONAL NORMALISED RATIO ABNORMAL [None]
